FAERS Safety Report 14156906 (Version 1)
Quarter: 2017Q4

REPORT INFORMATION
  Report Type: Spontaneous
  Country: TW (occurrence: TW)
  Receive Date: 20171103
  Receipt Date: 20171103
  Transmission Date: 20180321
  Serious: Yes (Other)
  Sender: FDA-Public Use
  Company Number: TW-SUN PHARMACEUTICAL INDUSTRIES LTD-2017RR-153794

PATIENT
  Age: 43 Year
  Sex: Female

DRUGS (6)
  1. RISPERIDONE. [Suspect]
     Active Substance: RISPERIDONE
     Indication: MANIA
  2. ZOTEPINE [Suspect]
     Active Substance: ZOTEPINE
     Indication: MANIA
  3. LITHIUM. [Suspect]
     Active Substance: LITHIUM
     Indication: MANIA
  4. ZOTEPINE [Suspect]
     Active Substance: ZOTEPINE
     Indication: BIPOLAR I DISORDER
     Dosage: 100 MG, DAILY
     Route: 065
     Dates: start: 20160705
  5. LITHIUM. [Suspect]
     Active Substance: LITHIUM
     Indication: BIPOLAR I DISORDER
     Dosage: 600 MG, DAILY
     Route: 065
     Dates: start: 2014
  6. RISPERIDONE. [Suspect]
     Active Substance: RISPERIDONE
     Indication: BIPOLAR I DISORDER
     Dosage: 3 MG, DAILY
     Route: 065
     Dates: start: 2014

REACTIONS (2)
  - Amenorrhoea [Recovered/Resolved]
  - Weight increased [Unknown]
